FAERS Safety Report 5850366-0 (Version None)
Quarter: 2008Q3

REPORT INFORMATION
  Report Type: 
  Country: None (occurrence: None)
  Receive Date: 20080731
  Receipt Date: 20080414
  Transmission Date: 20090109
  Serious: No
  Sender: FDA-Public Use
  Company Number: US200804003499

PATIENT
  Age: 49 Year
  Sex: Female
  Weight: 88.4 kg

DRUGS (4)
  1. BYETTA [Suspect]
     Indication: TYPE 2 DIABETES MELLITUS
     Dosage: 5 UG, 2/D, SUBCUTANEOUS : 5 UG, DAILY (1/D), SUBCUTANEOUS
     Route: 058
     Dates: start: 20080221, end: 20080401
  2. BYETTA [Suspect]
     Indication: TYPE 2 DIABETES MELLITUS
     Dosage: 5 UG, 2/D, SUBCUTANEOUS : 5 UG, DAILY (1/D), SUBCUTANEOUS
     Route: 058
     Dates: start: 20080401
  3. METFORMIN HCL [Concomitant]
  4. GLIPIZIDE [Concomitant]

REACTIONS (7)
  - BLOOD GLUCOSE DECREASED [None]
  - DYSPEPSIA [None]
  - HEART RATE INCREASED [None]
  - NAUSEA [None]
  - TREMOR [None]
  - VOMITING PROJECTILE [None]
  - WEIGHT DECREASED [None]
